FAERS Safety Report 8184842-5 (Version None)
Quarter: 2012Q1

REPORT INFORMATION
  Report Type: 
  Country: None (occurrence: None)
  Receive Date: 20120210
  Receipt Date: 20120210
  Transmission Date: 20120608
  Serious: Yes (Other)
  Sender: FDA-Public Use
  Company Number: MTX-11-053

PATIENT
  Age: 58 Year

DRUGS (2)
  1. TRAMADOL 50 MG. 4X/DAY [Concomitant]
  2. METHOTREXATE [Suspect]
     Indication: RHEUMATOID ARTHRITIS
     Dosage: 2.5 MG. ORALLY 1X/WEEK
     Route: 048

REACTIONS (2)
  - PAIN [None]
  - BLISTER [None]
